FAERS Safety Report 14055831 (Version 2)
Quarter: 2017Q4

REPORT INFORMATION
  Report Type: Spontaneous
  Country: US (occurrence: US)
  Receive Date: 20171006
  Receipt Date: 20171117
  Transmission Date: 20180321
  Serious: Yes (Other)
  Sender: FDA-Public Use
  Company Number: US-PFIZER INC-2017428176

PATIENT
  Age: 70 Year
  Sex: Female
  Weight: 104.31 kg

DRUGS (2)
  1. XGEVA [Suspect]
     Active Substance: DENOSUMAB
     Dosage: UNK, MONTHLY
     Route: 058
     Dates: end: 2017
  2. IBRANCE [Suspect]
     Active Substance: PALBOCICLIB
     Indication: BREAST CANCER METASTATIC
     Dosage: 125 MG, CYCLIC (21 DAYS ON AND 7 DAYS OFF)
     Dates: start: 201611, end: 201710

REACTIONS (4)
  - Product use in unapproved indication [Unknown]
  - Osteonecrosis [Recovering/Resolving]
  - Asthenia [Unknown]
  - Loss of personal independence in daily activities [Unknown]
